FAERS Safety Report 7568563-5 (Version None)
Quarter: 2011Q2

REPORT INFORMATION
  Report Type: 
  Country: None (occurrence: None)
  Receive Date: 20110623
  Receipt Date: 20110609
  Transmission Date: 20111010
  Serious: Yes (Other)
  Sender: FDA-Public Use
  Company Number: GB-JNJFOC-20110105877

PATIENT
  Sex: Female

DRUGS (1)
  1. REMICADE [Suspect]
     Indication: CROHN'S DISEASE
     Route: 042

REACTIONS (5)
  - LUPUS-LIKE SYNDROME [None]
  - ANTINUCLEAR ANTIBODY INCREASED [None]
  - ASTHMA [None]
  - SKIN LESION [None]
  - ERYTHEMA NODOSUM [None]
